FAERS Safety Report 6291406-7 (Version None)
Quarter: 2009Q3

REPORT INFORMATION
  Report Type: 
  Country: None (occurrence: None)
  Receive Date: 20090730
  Receipt Date: 20090717
  Transmission Date: 20100115
  Serious: Yes (Other)
  Sender: FDA-Public Use
  Company Number: TW-MYLANLABS-2009S1012617

PATIENT
  Age: 52 Year
  Sex: Male

DRUGS (2)
  1. TICLOPIDINE HCL [Suspect]
     Indication: ANTIPLATELET THERAPY
     Route: 048
  2. TICLOPIDINE HCL [Suspect]
     Route: 048

REACTIONS (1)
  - DIFFUSE ALVEOLAR DAMAGE [None]
